FAERS Safety Report 7030993-8 (Version None)
Quarter: 2010Q4

REPORT INFORMATION
  Report Type: 
  Country: None (occurrence: None)
  Receive Date: 20101006
  Receipt Date: 20100512
  Transmission Date: 20110411
  Serious: No
  Sender: FDA-Public Use
  Company Number: US-BRISTOL-MYERS SQUIBB COMPANY-15102049

PATIENT
  Age: 61 Year
  Sex: Female

DRUGS (3)
  1. KENALOG-40 [Suspect]
     Indication: ARTHRALGIA
  2. PREVACID [Concomitant]
  3. CRESTOR [Concomitant]

REACTIONS (2)
  - COORDINATION ABNORMAL [None]
  - DIZZINESS [None]
